FAERS Safety Report 9161099 (Version 1)
Quarter: 2013Q1

REPORT INFORMATION
  Report Type: Spontaneous
  Country: GB (occurrence: GB)
  Receive Date: 20130313
  Receipt Date: 20130313
  Transmission Date: 20140127
  Serious: Yes (Other)
  Sender: FDA-Public Use
  Company Number: PHHY2013GB022346

PATIENT
  Age: 11 Month
  Sex: 0

DRUGS (2)
  1. KETAMINE [Suspect]
     Indication: GENERAL ANAESTHESIA
  2. ROCURONIUM BROMIDE [Suspect]
     Indication: GENERAL ANAESTHESIA

REACTIONS (2)
  - Supraventricular tachycardia [Unknown]
  - Oxygen saturation decreased [Recovering/Resolving]
